FAERS Safety Report 9861665 (Version 2)
Quarter: 2014Q1

REPORT INFORMATION
  Report Type: Spontaneous
  Country: US (occurrence: US)
  Receive Date: 20140203
  Receipt Date: 20140203
  Transmission Date: 20141002
  Serious: Yes (Other)
  Sender: FDA-Public Use
  Company Number: US-BEH-2012030952

PATIENT
  Age: 58 Year
  Sex: Female
  Weight: 83 kg

DRUGS (35)
  1. HIZENTRA [Suspect]
     Indication: IMMUNODEFICIENCY COMMON VARIABLE
     Dosage: (50 ML) 3 SITES OVER 1-2 HOURS
     Route: 058
     Dates: start: 20120110
  2. HIZENTRA [Suspect]
     Indication: HYPOGLOBULINAEMIA
     Route: 058
  3. CYMBALTA [Concomitant]
  4. AMBIEN [Concomitant]
  5. VOLTAREN [Concomitant]
  6. CIPRO [Concomitant]
  7. MUPIROCIN [Concomitant]
  8. GABAPENTIN [Concomitant]
  9. CLOBETASOL [Concomitant]
  10. DIAZEPAM [Concomitant]
  11. CRESTOR [Concomitant]
  12. TURMERIC [Concomitant]
  13. ESTER-C [Concomitant]
  14. TRETINOIN [Concomitant]
  15. PROAIR HFA [Concomitant]
  16. ACIDOPHILUS [Concomitant]
  17. FISH OIL [Concomitant]
  18. VITAMIN D3 [Concomitant]
  19. SINGULAIR [Concomitant]
  20. FLONASE [Concomitant]
  21. TRAZODONE [Concomitant]
  22. HYDROCODONE [Concomitant]
  23. ADVIL [Concomitant]
  24. SPIRIVA [Concomitant]
  25. ACIPHEX [Concomitant]
  26. SYNTHROID [Concomitant]
  27. TROKENDI [Concomitant]
  28. MACROBID [Concomitant]
  29. TOPIRAMATE [Concomitant]
  30. LEXAPRO [Concomitant]
  31. ACETAMINOPHEN [Concomitant]
  32. DIPHENHYDRAMINE [Concomitant]
  33. LIDOCAINE/PRILOCAINE [Concomitant]
  34. EPIPEN [Concomitant]
  35. DEXILANT [Concomitant]

REACTIONS (2)
  - Urinary tract infection [Unknown]
  - Infusion site mass [Unknown]
